FAERS Safety Report 8243866-X (Version None)
Quarter: 2012Q1

REPORT INFORMATION
  Report Type: 
  Country: None (occurrence: None)
  Receive Date: 20120329
  Receipt Date: 20110224
  Transmission Date: 20120608
  Serious: No
  Sender: FDA-Public Use
  Company Number: US-MYLANLABS-2011S1003690

PATIENT
  Sex: Female

DRUGS (1)
  1. ESTRADIOL [Suspect]
     Indication: HORMONE REPLACEMENT THERAPY
     Dosage: QWEEK
     Route: 062
     Dates: start: 20110101, end: 20110201

REACTIONS (5)
  - APPLICATION SITE BURN [None]
  - PALPITATIONS [None]
  - VOMITING [None]
  - VISION BLURRED [None]
  - HEADACHE [None]
